FAERS Safety Report 9068453 (Version 1)
Quarter: 2013Q1

REPORT INFORMATION
  Report Type: Spontaneous
  Country: US (occurrence: None)
  Receive Date: 20130213
  Receipt Date: 20130213
  Transmission Date: 20140127
  Serious: Yes (Life-Threatening, Hospitalization)
  Sender: FDA-Public Use
  Company Number: None

PATIENT
  Age: 44 Year
  Sex: Female
  Weight: 72.58 kg

DRUGS (1)
  1. ZOLPIDEM [Suspect]
     Indication: INSOMNIA
     Dosage: ONE  AT NIGHT  PO
     Route: 048
     Dates: start: 20120701, end: 20120821

REACTIONS (4)
  - Staring [None]
  - Impaired driving ability [None]
  - Road traffic accident [None]
  - Amnesia [None]
